FAERS Safety Report 13512145 (Version 1)
Quarter: 2017Q2

REPORT INFORMATION
  Report Type: Report from Study
  Country: US (occurrence: US)
  Receive Date: 20170504
  Receipt Date: 20170504
  Transmission Date: 20170830
  Serious: Yes (Other)
  Sender: FDA-Public Use
  Company Number: US-JNJFOC-20170123914

PATIENT
  Age: 72 Year
  Sex: Male

DRUGS (1)
  1. IMBRUVICA [Suspect]
     Active Substance: IBRUTINIB
     Indication: CHRONIC LYMPHOCYTIC LEUKAEMIA
     Route: 048
     Dates: end: 20170423

REACTIONS (8)
  - Haematochezia [Not Recovered/Not Resolved]
  - Fatigue [Unknown]
  - Dry eye [Not Recovered/Not Resolved]
  - Faeces discoloured [Not Recovered/Not Resolved]
  - Rash [Recovered/Resolved]
  - Diverticulitis [Not Recovered/Not Resolved]
  - White blood cell count increased [Recovering/Resolving]
  - Stomatitis [Not Recovered/Not Resolved]

NARRATIVE: CASE EVENT DATE: 201704
